FAERS Safety Report 15398043 (Version 1)
Quarter: 2018Q3

REPORT INFORMATION
  Report Type: Report from Study
  Country: US (occurrence: US)
  Receive Date: 20180918
  Receipt Date: 20180918
  Transmission Date: 20181010
  Serious: Yes (Hospitalization, Other)
  Sender: FDA-Public Use
  Company Number: US-GILEAD-2018-0329915

PATIENT
  Age: 3 Year
  Sex: Female

DRUGS (1)
  1. AZTREONAM LYSINE [Suspect]
     Active Substance: AZTREONAM LYSINE
     Indication: PRODUCT USED FOR UNKNOWN INDICATION
     Dosage: 75 MG, TID EVERY OTHER MONTH
     Route: 055
     Dates: start: 20180404

REACTIONS (2)
  - Pseudomonas infection [Not Recovered/Not Resolved]
  - Off label use [Not Recovered/Not Resolved]
